FAERS Safety Report 21516048 (Version 2)
Quarter: 2022Q4

REPORT INFORMATION
  Report Type: Other
  Country: FR (occurrence: FR)
  Receive Date: 20221027
  Receipt Date: 20221207
  Transmission Date: 20230113
  Serious: Yes (Death)
  Sender: FDA-Public Use
  Company Number: FR-ROCHE-3208491

PATIENT
  Age: 64 Year
  Sex: Male

DRUGS (9)
  1. RITUXIMAB [Suspect]
     Active Substance: RITUXIMAB
     Indication: Transplant rejection
     Route: 065
  2. CYCLOSPORINE [Suspect]
     Active Substance: CYCLOSPORINE
     Indication: Prophylaxis against transplant rejection
     Route: 065
  3. MYCOPHENOLATE MOFETIL [Suspect]
     Active Substance: MYCOPHENOLATE MOFETIL
     Indication: Prophylaxis against transplant rejection
     Route: 065
  4. BASILIXIMAB [Suspect]
     Active Substance: BASILIXIMAB
     Indication: Prophylaxis against transplant rejection
     Route: 065
  5. TACROLIMUS [Suspect]
     Active Substance: TACROLIMUS
     Indication: Prophylaxis against transplant rejection
     Route: 065
  6. IMATINIB MESYLATE [Concomitant]
     Active Substance: IMATINIB MESYLATE
     Dosage: DISCONTINUED 4 MONTH LATER
  7. SUTENT [Concomitant]
     Active Substance: SUNITINIB MALATE
     Dosage: FIVE MONTHS LATER, IT WAS REPLACED
  8. STIVARGA [Concomitant]
     Active Substance: REGORAFENIB
     Dosage: DISCONTINUED DUE TO SIDE EFFECTS
  9. SPRYCEL [Concomitant]
     Active Substance: DASATINIB

REACTIONS (2)
  - Gastrointestinal stromal tumour [Fatal]
  - Off label use [Unknown]
